FAERS Safety Report 9310803 (Version 1)
Quarter: 2013Q2

REPORT INFORMATION
  Report Type: Spontaneous
  Country: US (occurrence: US)
  Receive Date: 20130528
  Receipt Date: 20130528
  Transmission Date: 20140414
  Serious: No
  Sender: FDA-Public Use
  Company Number: US-B.I. PHARMACEUTICALS,INC./RIDGEFIELD-2013-BI-14596BP

PATIENT
  Age: 51 Year
  Sex: Male

DRUGS (5)
  1. SPIRIVA [Suspect]
     Dosage: 18 MCG
     Route: 055
     Dates: start: 201103
  2. DILANTIN [Concomitant]
     Route: 048
  3. PROTONIX [Concomitant]
     Route: 048
  4. NORVASC [Concomitant]
     Route: 048
  5. VENTOLIN [Concomitant]
     Route: 055

REACTIONS (1)
  - Dry throat [Unknown]
